FAERS Safety Report 11029774 (Version 1)
Quarter: 2015Q2

REPORT INFORMATION
  Report Type: Spontaneous
  Country: US (occurrence: None)
  Receive Date: 20150414
  Receipt Date: 20150414
  Transmission Date: 20150821
  Serious: No
  Sender: FDA-Public Use
  Company Number: None

PATIENT
  Age: 58 Year
  Sex: Male

DRUGS (1)
  1. SUTENT [Suspect]
     Active Substance: SUNITINIB MALATE
     Indication: NEOPLASM MALIGNANT
     Dosage: 1QD X 3 WEEKS ON, 2 WEEKS OFF?QD X 3 WEEKS ON, ORAL
     Route: 048
     Dates: start: 20141027

REACTIONS (3)
  - Muscle spasms [None]
  - Insomnia [None]
  - Tinnitus [None]

NARRATIVE: CASE EVENT DATE: 201504
